FAERS Safety Report 8276398-3 (Version None)
Quarter: 2012Q2

REPORT INFORMATION
  Report Type: 
  Country: None (occurrence: None)
  Receive Date: 20120412
  Receipt Date: 20120409
  Transmission Date: 20120825
  Serious: Yes (Other)
  Sender: FDA-Public Use
  Company Number: US-JNJFOC-20120209805

PATIENT
  Age: 50 Year
  Sex: Male
  Weight: 77.11 kg

DRUGS (3)
  1. VITAMIN [Concomitant]
     Indication: VITAMIN SUPPLEMENTATION
     Route: 065
  2. MINOXIDIL [Suspect]
     Indication: HAIR GROWTH ABNORMAL
     Dosage: 1-2 TIMES A DAY.
     Route: 061
  3. MINOXIDIL [Suspect]
     Route: 061

REACTIONS (2)
  - UNDERDOSE [None]
  - PSORIASIS [None]
